FAERS Safety Report 21160537 (Version 1)
Quarter: 2022Q3

REPORT INFORMATION
  Report Type: Spontaneous
  Country: US (occurrence: None)
  Receive Date: 20220801
  Receipt Date: 20220801
  Transmission Date: 20221027
  Serious: Yes (Life-Threatening, Hospitalization, Disabling, Other)
  Sender: FDA-Public Use
  Company Number: None

PATIENT
  Age: 82 Year
  Sex: Male
  Weight: 101.25 kg

DRUGS (9)
  1. KEYTRUDA [Suspect]
     Active Substance: PEMBROLIZUMAB
     Indication: Clear cell renal cell carcinoma
  2. OMEPRAZOLE [Concomitant]
     Active Substance: OMEPRAZOLE
  3. METFORMIN [Concomitant]
     Active Substance: METFORMIN HYDROCHLORIDE
  4. ATORVASTATIN [Concomitant]
     Active Substance: ATORVASTATIN
  5. METOPROLOL [Concomitant]
  6. ELIQUIS [Concomitant]
     Active Substance: APIXABAN
  7. MELATONIN [Concomitant]
     Active Substance: MELATONIN
  8. BENADRYL [Concomitant]
  9. TYLENOL [Concomitant]

REACTIONS (8)
  - Eyelid ptosis [None]
  - Asthenia [None]
  - Dyspnoea [None]
  - Myasthenia gravis [None]
  - SARS-CoV-2 test positive [None]
  - Acidosis [None]
  - Troponin increased [None]
  - Myocardial infarction [None]

NARRATIVE: CASE EVENT DATE: 20220711
